FAERS Safety Report 9911047 (Version 2)
Quarter: 2014Q1

REPORT INFORMATION
  Report Type: Spontaneous
  Country: US (occurrence: US)
  Receive Date: 20140219
  Receipt Date: 20140219
  Transmission Date: 20141002
  Serious: No
  Sender: FDA-Public Use
  Company Number: US-GILEAD-2012-0050199

PATIENT
  Age: 56 Year
  Sex: Female

DRUGS (4)
  1. LETAIRIS [Suspect]
     Indication: PRODUCT USED FOR UNKNOWN INDICATION
     Dosage: 10 MG, UNK
     Route: 048
     Dates: start: 20110320
  2. REMODULIN [Concomitant]
  3. REVATIO [Concomitant]
  4. OXYGEN [Concomitant]

REACTIONS (9)
  - Blood glucose abnormal [Unknown]
  - Feeling abnormal [Unknown]
  - Diarrhoea [Unknown]
  - Decreased appetite [Unknown]
  - Asthenia [Unknown]
  - Fatigue [Unknown]
  - Blood glucose increased [Unknown]
  - Dyspnoea [Unknown]
  - Nausea [Unknown]
